FAERS Safety Report 14497934 (Version 1)
Quarter: 2018Q1

REPORT INFORMATION
  Report Type: Spontaneous
  Country: MX (occurrence: MX)
  Receive Date: 20180207
  Receipt Date: 20180207
  Transmission Date: 20180509
  Serious: Yes (Other)
  Sender: FDA-Public Use
  Company Number: MX-PFIZER INC-2018052122

PATIENT
  Age: 66 Year
  Sex: Female

DRUGS (3)
  1. DYNASTAT [Suspect]
     Active Substance: PARECOXIB SODIUM
     Dosage: UNK
  2. PRISTIQ EXTENDED-RELEASE [Suspect]
     Active Substance: DESVENLAFAXINE SUCCINATE
     Dosage: 50 MG, UNKNOWN FREQUENCY
  3. LYRICA [Suspect]
     Active Substance: PREGABALIN
     Dosage: 150 MG, UNKNOWN FREQUENCY

REACTIONS (1)
  - Systemic lupus erythematosus [Not Recovered/Not Resolved]
